FAERS Safety Report 4340120-3 (Version None)
Quarter: 2004Q2

REPORT INFORMATION
  Report Type: 
  Country: None (occurrence: None)
  Receive Date: 20040416
  Receipt Date: 20040407
  Transmission Date: 20050107
  Serious: Yes (Hospitalization)
  Sender: FDA-Public Use
  Company Number: PHRM2004FR01461

PATIENT
  Age: 43 Year
  Sex: Female
  Weight: 73 kg

DRUGS (2)
  1. PARLODEL [Suspect]
     Indication: HYPERPROLACTINAEMIA
     Dosage: 2.5 MG/DAY
     Route: 048
     Dates: start: 19910101, end: 20031101
  2. PARLODEL [Suspect]
     Dosage: 7.5 MG/DAY
     Route: 048
     Dates: start: 20031201

REACTIONS (4)
  - AMENORRHOEA [None]
  - BLOOD PROLACTIN INCREASED [None]
  - DELIRIUM [None]
  - TREATMENT NONCOMPLIANCE [None]
